FAERS Safety Report 7950910-3 (Version None)
Quarter: 2011Q4

REPORT INFORMATION
  Report Type: 
  Country: None (occurrence: None)
  Receive Date: 20111201
  Receipt Date: 20111122
  Transmission Date: 20120403
  Serious: No
  Sender: FDA-Public Use
  Company Number: US-BIOGENIDEC-2011BI025655

PATIENT
  Sex: Female

DRUGS (2)
  1. TYSABRI [Suspect]
     Indication: MULTIPLE SCLEROSIS
     Route: 042
     Dates: start: 20091125
  2. TYSABRI [Suspect]
     Route: 042
     Dates: start: 20070418, end: 20071016

REACTIONS (13)
  - PAIN [None]
  - FALL [None]
  - LIGAMENT SPRAIN [None]
  - MUSCLE SPASMS [None]
  - HEADACHE [None]
  - INFLUENZA [None]
  - VISION BLURRED [None]
  - MUSCULAR WEAKNESS [None]
  - ASTHENIA [None]
  - HYPERHIDROSIS [None]
  - FEELING OF BODY TEMPERATURE CHANGE [None]
  - MEMORY IMPAIRMENT [None]
  - GAIT DISTURBANCE [None]
